FAERS Safety Report 5117029-0 (Version None)
Quarter: 2006Q3

REPORT INFORMATION
  Report Type: 
  Country: None (occurrence: None)
  Receive Date: 20060925
  Receipt Date: 20060912
  Transmission Date: 20061208
  Serious: Yes (Death)
  Sender: FDA-Public Use
  Company Number: 2006109510

PATIENT
  Age: 77 Year
  Sex: Male

DRUGS (5)
  1. ZYVOX [Suspect]
     Indication: STAPHYLOCOCCAL INFECTION
     Dosage: 600 MG, INTRAVENOUS
     Route: 042
     Dates: start: 20060908, end: 20060908
  2. PAZUCROSS (PAZUFLOXACIN) [Concomitant]
  3. VANCOMYCIN [Concomitant]
  4. TEICOPLANIN (TEICOPLANIN) [Concomitant]
  5. ARBEKACIN (ARBEKACIN) [Concomitant]

REACTIONS (1)
  - RASH GENERALISED [None]
